FAERS Safety Report 12622818 (Version 1)
Quarter: 2016Q3

REPORT INFORMATION
  Report Type: Spontaneous
  Country: CH (occurrence: CH)
  Receive Date: 20160804
  Receipt Date: 20160804
  Transmission Date: 20161109
  Serious: Yes (Death, Hospitalization)
  Sender: FDA-Public Use
  Company Number: CH-PFIZER INC-2016363864

PATIENT
  Age: 86 Year
  Sex: Female

DRUGS (21)
  1. IMPORTAL [Concomitant]
     Active Substance: LACTITOL
     Dosage: 20 ML, 2X/DAY (1-0-1-0)
     Route: 048
  2. TEMESTA /00273201/ [Concomitant]
     Active Substance: LORAZEPAM
     Dosage: 1 MG, 1X/DAY (0-0-0-1)
  3. TARDYFERON [Concomitant]
     Active Substance: FERROUS SULFATE
     Dosage: 1 DF, 2X/DAY (1-0-1-0)
     Route: 048
  4. PREDNISON [Suspect]
     Active Substance: PREDNISONE
     Dosage: 10 MG, 1X/DAY (0.5 (20 MG)-0-0-0)
     Route: 048
  5. PANTOZOL [Concomitant]
     Active Substance: PANTOPRAZOLE SODIUM
     Dosage: 40 MG, 1X/DAY (0-0-1-0)
     Route: 048
  6. RAMIPRIL. [Concomitant]
     Active Substance: RAMIPRIL
     Dosage: 2.5 MG, 2X/DAY (0.5(5 MG)-0-0.5-0)
     Route: 048
  7. MORPHINI [Concomitant]
     Active Substance: MORPHINE HYDROCHLORIDE
     Dosage: 4 ML, 3X/DAY (6 H/12 H/18H)
     Route: 048
  8. MOVICOL [Concomitant]
     Active Substance: POLYETHYLENE GLYCOL 3350\POTASSIUM CHLORIDE\SODIUM BICARBONATE\SODIUM CHLORIDE
     Dosage: 1 DF, ALTERNATE DAY (ODD NUMBERED DAYS)
     Route: 048
  9. KCL-RETARD [Suspect]
     Active Substance: POTASSIUM CHLORIDE
     Dosage: 10 MMOL, 1X/DAY
     Route: 048
  10. TORASEMID SANDOZ [Concomitant]
     Active Substance: TORSEMIDE
     Dosage: 100 MG, 2X/DAY (0.5 (200 MG)-0.5-0-0)
     Route: 048
  11. ALDACTONE [Suspect]
     Active Substance: SPIRONOLACTONE
     Dosage: 25 MG, 2X/DAY
     Route: 048
  12. ASPIRIN CARDIO [Suspect]
     Active Substance: ASPIRIN
     Dosage: 100 MG, 1X/DAY (1-0-0-0)
     Route: 048
  13. MOTILIUM [Concomitant]
     Active Substance: DOMPERIDONE
     Dosage: 10 MG, 3X/DAY (1-1-1-0)
     Route: 048
  14. METOLAZON [Concomitant]
     Active Substance: METOLAZONE
     Dosage: 5 MG, 1X/DAY (1-0-0-0)
     Route: 048
  15. AMLODIPIN /00972401/ [Concomitant]
     Active Substance: AMLODIPINE BESYLATE
     Dosage: 10 MG, 1X/DAY (0-1-0-0)
     Route: 048
  16. ELTROXIN [Concomitant]
     Active Substance: LEVOTHYROXINE
     Dosage: 0.05 MG, 1X/DAY (1-0-0-0)
     Route: 048
  17. NOVALGIN [Concomitant]
     Active Substance: METAMIZOLE SODIUM
     Dosage: 20 GTT, 4X/DAY (1-1-1-1)
     Route: 048
  18. VI-DE 3 [Concomitant]
     Active Substance: CHOLECALCIFEROL
     Dosage: 20 GTT, 1X/DAY (1-0-0-0)
     Route: 048
  19. MST CONTINUS [Concomitant]
     Active Substance: MORPHINE SULFATE
     Dosage: 10 MG, 2X/DAY (1-0-1-0)
     Route: 048
  20. CALCIMAGON D3 [Concomitant]
     Active Substance: CALCIUM\CHOLECALCIFEROL
     Dosage: 1 DF, 2X/DAY (1-0-1-0)
     Route: 048
  21. VITALUX /01586901/ [Concomitant]
     Dosage: 1 DF, 1X/DAY (0-1-0-0)

REACTIONS (3)
  - Haematemesis [Not Recovered/Not Resolved]
  - Death [Fatal]
  - Abdominal pain [Not Recovered/Not Resolved]

NARRATIVE: CASE EVENT DATE: 20150202
